FAERS Safety Report 23378946 (Version 1)
Quarter: 2024Q1

REPORT INFORMATION
  Report Type: Spontaneous
  Country: US (occurrence: US)
  Receive Date: 20240108
  Receipt Date: 20240108
  Transmission Date: 20240409
  Serious: No
  Sender: FDA-Public Use
  Company Number: US-LUNDBECK-DKLU3071838

PATIENT
  Sex: Female

DRUGS (3)
  1. ONFI [Suspect]
     Active Substance: CLOBAZAM
     Indication: Product used for unknown indication
     Route: 065
  2. ONFI [Suspect]
     Active Substance: CLOBAZAM
     Route: 065
  3. DAYBUE [Suspect]
     Active Substance: TROFINETIDE
     Indication: Product used for unknown indication
     Route: 065

REACTIONS (3)
  - Drug interaction [Recovering/Resolving]
  - Hypersomnia [Recovering/Resolving]
  - Fatigue [Recovering/Resolving]
